FAERS Safety Report 5202767-1 (Version None)
Quarter: 2006Q4

REPORT INFORMATION
  Report Type: 
  Country: None (occurrence: None)
  Receive Date: 20061018
  Receipt Date: 20060307
  Transmission Date: 20070319
  Serious: Yes (Other)
  Sender: FDA-Public Use
  Company Number: 438895

PATIENT
  Age: 75 Year
  Sex: Female
  Weight: 83.9 kg

DRUGS (16)
  1. ALEVE [Suspect]
     Indication: ARTHRALGIA
     Dosage: 220 MG, 2 PER DAY, ORAL
     Route: 048
     Dates: start: 20060215
  2. TYLENOL [Concomitant]
  3. NEURONTIN [Concomitant]
  4. GARLIC (ALLIUMSATIVUM) [Concomitant]
  5. ASCORBIC ACID [Concomitant]
  6. VITAMIN E (ALPHA-TOCOPHEROL) [Concomitant]
  7. GLUCOSAMINE [Concomitant]
  8. VITAMIN B COMPLEX CAP [Concomitant]
  9. LORAZEPAM [Concomitant]
  10. CALCIUM [Concomitant]
  11. CENTRIUM SILVER (MINERALS NOS/MULTIVITAMIN NOS) [Concomitant]
  12. AMBIEN [Concomitant]
  13. FLEXERIL [Concomitant]
  14. WATER PILLS NOS (DIURETIC NOS) [Concomitant]
  15. PREVACID [Concomitant]
  16. NAPROSYN [Suspect]
     Indication: DRUG USE FOR UNKNOWN INDICATION

REACTIONS (1)
  - RECTAL HAEMORRHAGE [None]
